FAERS Safety Report 24277155 (Version 1)
Quarter: 2024Q3

REPORT INFORMATION
  Report Type: Spontaneous
  Country: NL (occurrence: NL)
  Receive Date: 20240903
  Receipt Date: 20240903
  Transmission Date: 20241016
  Serious: Yes (Death)
  Sender: JOHNSON AND JOHNSON
  Company Number: NL-JNJFOC-20240881310

PATIENT
  Age: 80 Year
  Sex: Male

DRUGS (1)
  1. DARZALEX [Suspect]
     Active Substance: DARATUMUMAB
     Indication: Kidney transplant rejection
     Route: 065

REACTIONS (2)
  - Cerebral haemorrhage [Fatal]
  - Off label use [Unknown]
